FAERS Safety Report 21905711 (Version 5)
Quarter: 2023Q2

REPORT INFORMATION
  Report Type: Spontaneous
  Country: FR (occurrence: FR)
  Receive Date: 20230124
  Receipt Date: 20230619
  Transmission Date: 20230721
  Serious: Yes (Hospitalization, Other)
  Sender: FDA-Public Use
  Company Number: FR-JNJFOC-20230125240

PATIENT
  Age: 82 Year
  Sex: Female
  Weight: 78 kg

DRUGS (4)
  1. TECLISTAMAB [Suspect]
     Active Substance: TECLISTAMAB
     Indication: Plasma cell myeloma refractory
     Dosage: 90/MG/ML?4TH LINE OF TREATMENT
     Route: 058
     Dates: start: 20230112
  2. TECLISTAMAB [Suspect]
     Active Substance: TECLISTAMAB
     Dosage: 16-JAN-2023- RECEIVED 2ND STEP-UP DOSE
     Route: 058
  3. TECLISTAMAB [Suspect]
     Active Substance: TECLISTAMAB
     Dosage: ERROR ON FIRST INJECTION WITH DOSE RECEIVED ON D1 OF 45 MG INSTEAD OF 4.5 MG
     Route: 058
     Dates: start: 20230112, end: 20230112
  4. TECLISTAMAB [Suspect]
     Active Substance: TECLISTAMAB
     Dosage: RESUMPTION OF TREATMENT ON D5 WITH A DOSE OF 94 MG
     Route: 058

REACTIONS (5)
  - Cytokine release syndrome [Recovered/Resolved]
  - Incorrect dose administered [Recovered/Resolved]
  - Overdose [Recovered/Resolved]
  - Product label confusion [Recovered/Resolved]
  - Product preparation error [Recovered/Resolved]

NARRATIVE: CASE EVENT DATE: 20230112
